FAERS Safety Report 25095742 (Version 1)
Quarter: 2025Q1

REPORT INFORMATION
  Report Type: Spontaneous
  Country: IQ (occurrence: IQ)
  Receive Date: 20250319
  Receipt Date: 20250319
  Transmission Date: 20250408
  Serious: Yes (Other)
  Sender: RISING PHARMACEUTICALS
  Company Number: IQ-RISINGPHARMA-IQ-2025RISLIT00135

PATIENT
  Age: 4 Decade
  Sex: Male

DRUGS (4)
  1. PREDNISOLONE [Suspect]
     Active Substance: PREDNISOLONE
     Indication: Takayasu^s arteritis
     Route: 048
     Dates: start: 2023
  2. ETANERCEPT [Concomitant]
     Active Substance: ETANERCEPT
     Indication: Sacroiliac joint dysfunction
     Route: 058
     Dates: start: 20230119
  3. METHOTREXATE [Concomitant]
     Active Substance: METHOTREXATE
     Indication: Product used for unknown indication
     Route: 065
  4. INFLIXIMAB [Concomitant]
     Active Substance: INFLIXIMAB
     Indication: Product used for unknown indication
     Route: 042

REACTIONS (4)
  - Erectile dysfunction [Unknown]
  - Acne [Unknown]
  - Red blood cell sedimentation rate increased [Recovering/Resolving]
  - Product use in unapproved indication [Unknown]

NARRATIVE: CASE EVENT DATE: 20230101
